FAERS Safety Report 19489378 (Version 1)
Quarter: 2021Q3

REPORT INFORMATION
  Report Type: Report from Study
  Country: CO (occurrence: CO)
  Receive Date: 20210703
  Receipt Date: 20210703
  Transmission Date: 20211014
  Serious: Yes (Hospitalization, Other)
  Sender: FDA-Public Use
  Company Number: NVSC2020CO341130

PATIENT
  Age: 34 Year
  Sex: Female

DRUGS (3)
  1. MEKINIST [Suspect]
     Active Substance: TRAMETINIB DIMETHYL SULFOXIDE
     Indication: METASTATIC MALIGNANT MELANOMA
     Dosage: 2 MG, QD
     Route: 048
     Dates: start: 201912, end: 202012
  2. TAFINLAR [Suspect]
     Active Substance: DABRAFENIB MESYLATE
     Indication: METASTATIC MALIGNANT MELANOMA
     Dosage: 150 MG, Q12H
     Route: 048
     Dates: start: 201912, end: 202012
  3. ONDANSETRON [Suspect]
     Active Substance: ONDANSETRON
     Indication: VOMITING
     Dosage: 8 MG, Q8H
     Route: 048
     Dates: start: 201912, end: 202012

REACTIONS (21)
  - Metastases to pancreas [Unknown]
  - Back pain [Unknown]
  - Somnolence [Unknown]
  - Abdominal pain upper [Unknown]
  - Metastases to liver [Unknown]
  - Dysstasia [Unknown]
  - Gastritis [Unknown]
  - Metastatic malignant melanoma [Unknown]
  - Product prescribing error [Unknown]
  - Fall [Unknown]
  - Deafness [Unknown]
  - Mood altered [Unknown]
  - Abdominal pain [Unknown]
  - Inflammation [Unknown]
  - Headache [Unknown]
  - Terminal state [Unknown]
  - Metastases to central nervous system [Unknown]
  - Blindness [Unknown]
  - Malignant neoplasm progression [Unknown]
  - Malaise [Unknown]
  - Pain [Unknown]

NARRATIVE: CASE EVENT DATE: 202012
